FAERS Safety Report 10185688 (Version 1)
Quarter: 2014Q2

REPORT INFORMATION
  Report Type: Spontaneous
  Country: US (occurrence: US)
  Receive Date: 20140521
  Receipt Date: 20140521
  Transmission Date: 20141212
  Serious: No
  Sender: FDA-Public Use
  Company Number: US-ASTRAZENECA-2014SE11376

PATIENT
  Age: 47 Year
  Sex: Male
  Weight: 81.6 kg

DRUGS (3)
  1. PULMICORT FLEXHALER [Suspect]
     Indication: WHEEZING
     Route: 055
     Dates: start: 201312, end: 201312
  2. PULMICORT FLEXHALER [Suspect]
     Indication: WHEEZING
     Route: 055
     Dates: start: 201401, end: 201401
  3. PULMICORT FLEXHALER [Suspect]
     Indication: WHEEZING
     Route: 055
     Dates: start: 20140208

REACTIONS (4)
  - Wheezing [Not Recovered/Not Resolved]
  - Off label use [Unknown]
  - Intentional product misuse [Unknown]
  - Drug ineffective for unapproved indication [Unknown]
